FAERS Safety Report 8499666-9 (Version None)
Quarter: 2012Q2

REPORT INFORMATION
  Report Type: 
  Country: None (occurrence: None)
  Receive Date: 20120629
  Receipt Date: 20120626
  Transmission Date: 20120825
  Serious: Yes (Hospitalization)
  Sender: FDA-Public Use
  Company Number: 217959

PATIENT
  Age: 83 Year
  Sex: Female

DRUGS (2)
  1. INNOHEP [Suspect]
     Indication: PROPHYLAXIS
     Dates: start: 20120203, end: 20120326
  2. ENOXAPARIN SODIUM [Suspect]
     Indication: PROPHYLAXIS
     Dates: start: 20120203, end: 20120326

REACTIONS (2)
  - CHEST PAIN [None]
  - THROMBOCYTOSIS [None]
